FAERS Safety Report 17515398 (Version 1)
Quarter: 2020Q1

REPORT INFORMATION
  Report Type: Report from Study
  Country: GB (occurrence: GB)
  Receive Date: 20200309
  Receipt Date: 20200309
  Transmission Date: 20200409
  Serious: Yes (Other)
  Sender: FDA-Public Use
  Company Number: GB-IPSEN BIOPHARMACEUTICALS, INC.-2019-04211

PATIENT
  Age: 62 Year
  Sex: Female

DRUGS (2)
  1. SOMATULINE AUTOGEL [Suspect]
     Active Substance: LANREOTIDE ACETATE
     Dosage: 90 MG/0.3 ML
     Route: 065
     Dates: start: 201905
  2. SOMATULINE AUTOGEL [Suspect]
     Active Substance: LANREOTIDE ACETATE
     Indication: NEUROENDOCRINE TUMOUR
     Dosage: 120 MG/0.5 ML
     Route: 065
     Dates: start: 20190307, end: 2019

REACTIONS (18)
  - Muscle spasms [Recovering/Resolving]
  - Abdominal pain [Unknown]
  - Cough [Unknown]
  - Loss of personal independence in daily activities [Unknown]
  - Haemoptysis [Unknown]
  - Stress [Unknown]
  - Blood calcium increased [Unknown]
  - Decreased appetite [Unknown]
  - Nasopharyngitis [Recovering/Resolving]
  - Off label use [Unknown]
  - Neoplasm progression [Unknown]
  - Dyspnoea [Unknown]
  - Panic attack [Unknown]
  - Feeling abnormal [Unknown]
  - Nausea [Unknown]
  - Diarrhoea [Not Recovered/Not Resolved]
  - Fatigue [Unknown]
  - Cough [Recovering/Resolving]

NARRATIVE: CASE EVENT DATE: 2019
